FAERS Safety Report 8003956-3 (Version None)
Quarter: 2011Q4

REPORT INFORMATION
  Report Type: 
  Country: None (occurrence: None)
  Receive Date: 20111222
  Receipt Date: 20111220
  Transmission Date: 20120403
  Serious: No
  Sender: FDA-Public Use
  Company Number: US-BAYER-2011-122840

PATIENT
  Sex: Female
  Weight: 78.458 kg

DRUGS (5)
  1. LEXAPRO [Concomitant]
     Dosage: 5 MG, UNK
  2. XANAX [Concomitant]
     Dosage: 0.5 MG, UNK
  3. BETASERON [Suspect]
     Dosage: 3 MG, QOD
     Route: 058
  4. BACLOFEN [Concomitant]
     Dosage: 10 MG, UNK
  5. WELLBUTRIN [Concomitant]
     Dosage: 75 MG, UNK

REACTIONS (3)
  - INJECTION SITE HAEMORRHAGE [None]
  - HOT FLUSH [None]
  - FATIGUE [None]
